FAERS Safety Report 6388675-1 (Version None)
Quarter: 2009Q4

REPORT INFORMATION
  Report Type: 
  Country: None (occurrence: None)
  Receive Date: 20091005
  Receipt Date: 20090924
  Transmission Date: 20100525
  Serious: Yes (Other)
  Sender: FDA-Public Use
  Company Number: US-JNJFOC-20090908167

PATIENT
  Age: 4 Month
  Sex: Female
  Weight: 9.07 kg

DRUGS (2)
  1. TYLENOL (CAPLET) [Suspect]
     Route: 048
  2. TYLENOL (CAPLET) [Suspect]
     Indication: INJECTION
     Dosage: 1 TO 2 X A DAY FOR 1 WEEK
     Route: 048

REACTIONS (5)
  - DIARRHOEA [None]
  - EATING DISORDER [None]
  - INSOMNIA [None]
  - MALAISE [None]
  - TRANSMISSION OF AN INFECTIOUS AGENT VIA A MEDICINAL PRODUCT [None]
